FAERS Safety Report 8902592 (Version 2)
Quarter: 2013Q1

REPORT INFORMATION
  Report Type: Report from Study
  Country: US (occurrence: US)
  Receive Date: 20121112
  Receipt Date: 20130102
  Transmission Date: 20140127
  Serious: Yes (Other)
  Sender: FDA-Public Use
  Company Number: US-ASTRAZENECA-2012SE84068

PATIENT
  Age: 73 Year
  Sex: Male

DRUGS (3)
  1. SYMBICORT PMDI [Suspect]
     Route: 055
  2. CRESTOR [Suspect]
     Route: 048
  3. ASPIRIN [Concomitant]

REACTIONS (5)
  - Cerebrovascular accident [Unknown]
  - Dyspnoea [Unknown]
  - Confusional state [Unknown]
  - Disorientation [Unknown]
  - Sleep disorder [Unknown]
